FAERS Safety Report 9713803 (Version 1)
Quarter: 2013Q4

REPORT INFORMATION
  Report Type: Spontaneous
  Country: FR (occurrence: FR)
  Receive Date: 20131126
  Receipt Date: 20131126
  Transmission Date: 20140711
  Serious: Yes (Hospitalization)
  Sender: FDA-Public Use
  Company Number: FR-PERRIGO-13FR012003

PATIENT
  Age: 24 Year
  Sex: Female

DRUGS (2)
  1. IBUPROFEN 200 MG 604 [Suspect]
     Indication: PYREXIA
     Dosage: 2.4 G, QD
     Route: 048
  2. IBUPROFEN 200 MG 604 [Suspect]
     Indication: CHEST PAIN

REACTIONS (5)
  - Acute respiratory failure [Recovered/Resolved]
  - Haemoptysis [Recovered/Resolved]
  - Pleural effusion [Recovered/Resolved]
  - Pulmonary cavitation [Recovered/Resolved]
  - Lung abscess [Recovered/Resolved]
